FAERS Safety Report 22234276 (Version 1)
Quarter: 2023Q2

REPORT INFORMATION
  Report Type: Spontaneous
  Country: US (occurrence: None)
  Receive Date: 20230420
  Receipt Date: 20230420
  Transmission Date: 20230721
  Serious: No
  Sender: FDA-Public Use
  Company Number: US-ROCHE-3165556

PATIENT
  Sex: Female

DRUGS (1)
  1. ESBRIET [Suspect]
     Active Substance: PIRFENIDONE
     Indication: Idiopathic pulmonary fibrosis
     Route: 048
     Dates: start: 20220223

REACTIONS (5)
  - Urinary tract infection [Unknown]
  - Vomiting [Unknown]
  - Escherichia infection [Unknown]
  - Epigastric discomfort [Unknown]
  - Fatigue [Unknown]
